FAERS Safety Report 16095403 (Version 1)
Quarter: 2019Q1

REPORT INFORMATION
  Report Type: Spontaneous
  Country: US (occurrence: US)
  Receive Date: 20190320
  Receipt Date: 20190320
  Transmission Date: 20190418
  Serious: Yes (Other)
  Sender: FDA-Public Use
  Company Number: US-PFIZER INC-2019115148

PATIENT
  Age: 66 Year
  Sex: Female

DRUGS (3)
  1. AUBAGIO [Suspect]
     Active Substance: TERIFLUNOMIDE
     Indication: MULTIPLE SCLEROSIS
     Dosage: 14 MG, DAILY
     Route: 048
     Dates: start: 20140812
  2. XANAX [Suspect]
     Active Substance: ALPRAZOLAM
     Indication: PERSONALITY CHANGE
     Dosage: 0.5 MG, AS NEEDED [0.5 MG 3 TIMES PER DAY AS NEEDED]
     Dates: start: 2015
  3. PAXIL [Suspect]
     Active Substance: PAROXETINE HYDROCHLORIDE
     Indication: PERSONALITY CHANGE
     Dosage: 40 MG, DAILY
     Dates: start: 2015

REACTIONS (5)
  - Condition aggravated [Unknown]
  - Pain [Unknown]
  - Product use in unapproved indication [Unknown]
  - Nuclear magnetic resonance imaging abnormal [Unknown]
  - Diabetes mellitus [Unknown]

NARRATIVE: CASE EVENT DATE: 2015
